FAERS Safety Report 4777618-X (Version None)
Quarter: 2005Q3

REPORT INFORMATION
  Report Type: 
  Country: None (occurrence: None)
  Receive Date: 20050923
  Receipt Date: 20050830
  Transmission Date: 20060218
  Serious: Yes (Hospitalization, Other)
  Sender: FDA-Public Use
  Company Number: US-ABBOTT-05P-163-0309697-00

PATIENT
  Sex: Female

DRUGS (13)
  1. RITONAVIR SOFT GELATIN CAPSULES [Suspect]
     Indication: HIV INFECTION
     Route: 048
     Dates: start: 20050408, end: 20050804
  2. RITONAVIR SOFT GELATIN CAPSULES [Suspect]
  3. RITONAVIR SOFT GELATIN CAPSULES [Suspect]
  4. TIPRANAVIR [Concomitant]
     Indication: HIV INFECTION
     Route: 048
     Dates: start: 20050604, end: 20050804
  5. LAMIVUDINE [Concomitant]
     Indication: HIV INFECTION
     Route: 048
     Dates: start: 20041207, end: 20050104
  6. ATAGANAVIR [Concomitant]
     Indication: HIV INFECTION
     Route: 048
     Dates: start: 20041207, end: 20050104
  7. SAQUINAVIR MESILATE [Concomitant]
     Indication: HIV INFECTION
     Route: 048
     Dates: start: 20050408, end: 20050602
  8. FUZEON [Concomitant]
     Indication: HIV INFECTION
     Route: 058
     Dates: start: 20050602
  9. KALETRA [Concomitant]
     Indication: HIV INFECTION
     Route: 048
     Dates: start: 20040420
  10. LAMIVUDINE + ZIDOVUDINE [Concomitant]
     Indication: HIV INFECTION
     Route: 048
     Dates: start: 20050105
  11. DIDANOSINE [Concomitant]
     Indication: HIV INFECTION
     Route: 048
     Dates: start: 20040420
  12. VIREAD [Concomitant]
     Indication: HIV INFECTION
     Route: 048
     Dates: start: 20040420
  13. EMTRIVA [Concomitant]
     Indication: HIV INFECTION
     Route: 048
     Dates: start: 20041207

REACTIONS (4)
  - CAESAREAN SECTION [None]
  - DRUG EXPOSURE DURING PREGNANCY [None]
  - HELLP SYNDROME [None]
  - PRE-ECLAMPSIA [None]
